FAERS Safety Report 7310406-9 (Version None)
Quarter: 2011Q1

REPORT INFORMATION
  Report Type: 
  Country: None (occurrence: None)
  Receive Date: 20110224
  Receipt Date: 20100721
  Transmission Date: 20110831
  Serious: No
  Sender: FDA-Public Use
  Company Number: US-BRISTOL-MYERS SQUIBB COMPANY-15204431

PATIENT
  Sex: Female

DRUGS (1)
  1. METFORMIN HCL [Suspect]

REACTIONS (5)
  - MYALGIA [None]
  - APHTHOUS STOMATITIS [None]
  - HEADACHE [None]
  - SOMNOLENCE [None]
  - ANXIETY [None]
